FAERS Safety Report 15613111 (Version 8)
Quarter: 2025Q3

REPORT INFORMATION
  Report Type: Report from Study
  Country: EU (occurrence: EU)
  Receive Date: 20181113
  Receipt Date: 20250915
  Transmission Date: 20251021
  Serious: Yes (Other)
  Sender: ABBVIE
  Company Number: EU-ABBVIE-18P-144-2552944-00

PATIENT
  Age: 62 Year
  Sex: Female

DRUGS (17)
  1. HUMIRA [Suspect]
     Active Substance: ADALIMUMAB
     Indication: Colitis ulcerative
     Route: 058
     Dates: start: 20170518, end: 20180119
  2. MESALAMINE [Concomitant]
     Active Substance: MESALAMINE
     Indication: Colitis ulcerative
     Route: 048
     Dates: start: 20140526, end: 20181108
  3. MESALAMINE [Concomitant]
     Active Substance: MESALAMINE
     Indication: Colitis ulcerative
     Route: 054
     Dates: start: 20130611
  4. INFLIXIMAB [Concomitant]
     Active Substance: INFLIXIMAB
     Indication: Colitis ulcerative
     Route: 042
     Dates: start: 20180313, end: 20181108
  5. MASTICAL UNIDIA [Concomitant]
     Indication: Calcium deficiency
     Dosage: 1000/800 MG/IU
     Dates: start: 20170920, end: 20201014
  6. OMEPRAZOLE [Concomitant]
     Active Substance: OMEPRAZOLE
     Indication: Colitis ulcerative
     Route: 048
     Dates: start: 20151008, end: 20201014
  7. SIMVASTATIN [Concomitant]
     Active Substance: SIMVASTATIN
     Indication: Hypercholesterolaemia
     Route: 048
     Dates: start: 20170920
  8. DEFLAZACORT [Concomitant]
     Active Substance: DEFLAZACORT
     Indication: Colitis ulcerative
     Route: 048
     Dates: start: 20130504, end: 20130810
  9. DEFLAZACORT [Concomitant]
     Active Substance: DEFLAZACORT
     Indication: Colitis ulcerative
     Route: 048
     Dates: start: 20140224, end: 20140626
  10. DEFLAZACORT [Concomitant]
     Active Substance: DEFLAZACORT
     Indication: Colitis ulcerative
     Route: 048
     Dates: start: 20170421, end: 20170620
  11. DEFLAZACORT [Concomitant]
     Active Substance: DEFLAZACORT
     Indication: Colitis ulcerative
     Route: 048
     Dates: start: 20200527, end: 20201014
  12. METHOTREXATE [Concomitant]
     Active Substance: METHOTREXATE
     Indication: Colitis ulcerative
     Route: 048
     Dates: start: 20200130
  13. VEDOLIZUMAB [Concomitant]
     Active Substance: VEDOLIZUMAB
     Indication: Colitis ulcerative
     Route: 041
     Dates: start: 20200619
  14. SULFAMETHOXAZOLE\TRIMETHOPRIM [Concomitant]
     Active Substance: SULFAMETHOXAZOLE\TRIMETHOPRIM
     Indication: Colitis ulcerative
     Route: 048
     Dates: start: 20181108, end: 20181220
  15. SULFASALAZINE [Concomitant]
     Active Substance: SULFASALAZINE
     Indication: Colitis ulcerative
     Route: 048
     Dates: start: 20181108
  16. LANSOPRAZOLE [Concomitant]
     Active Substance: LANSOPRAZOLE
     Indication: Colitis ulcerative
     Route: 048
     Dates: start: 20201014
  17. CALCIFEDIOL [Concomitant]
     Active Substance: CALCIFEDIOL
     Indication: Colitis ulcerative
     Route: 048
     Dates: start: 20201029

REACTIONS (3)
  - Autoimmune hepatitis [Not Recovered/Not Resolved]
  - Hypertransaminasaemia [Recovered/Resolved]
  - Polyarthritis [Not Recovered/Not Resolved]

NARRATIVE: CASE EVENT DATE: 20181003
